FAERS Safety Report 4909251-0 (Version None)
Quarter: 2006Q1

REPORT INFORMATION
  Report Type: 
  Country: None (occurrence: None)
  Receive Date: 20060213
  Receipt Date: 20050503
  Transmission Date: 20060701
  Serious: Yes (Hospitalization)
  Sender: FDA-Public Use
  Company Number: 2005AP02581

PATIENT
  Age: 26387 Day
  Sex: Male
  Weight: 75.4 kg

DRUGS (3)
  1. IRESSA [Suspect]
     Indication: PROSTATE CANCER
     Route: 048
     Dates: start: 20050309, end: 20050422
  2. RADIOTHERAPY [Suspect]
     Indication: PROSTATE CANCER
     Dates: start: 20050316, end: 20050422
  3. RADIOTHERAPY [Suspect]
     Dosage: 72 GY IN TOTAL
     Dates: start: 20050510, end: 20050526

REACTIONS (5)
  - BLADDER PAIN [None]
  - DEPRESSION [None]
  - POLLAKIURIA [None]
  - REFUSAL OF TREATMENT BY PATIENT [None]
  - URINARY TRACT DISORDER [None]
